FAERS Safety Report 10102092 (Version 1)
Quarter: 2014Q2

REPORT INFORMATION
  Report Type: Spontaneous
  Country: US (occurrence: US)
  Receive Date: 20140424
  Receipt Date: 20140424
  Transmission Date: 20141212
  Serious: Yes (Hospitalization)
  Sender: FDA-Public Use
  Company Number: US-SA-2014SA048386

PATIENT
  Sex: 0

DRUGS (1)
  1. AUVI-Q [Suspect]
     Indication: FOOD ALLERGY
     Route: 065

REACTIONS (1)
  - Investigation [Unknown]
